FAERS Safety Report 14727097 (Version 1)
Quarter: 2018Q2

REPORT INFORMATION
  Report Type: Report from Study
  Country: BE (occurrence: BE)
  Receive Date: 20180406
  Receipt Date: 20180406
  Transmission Date: 20180711
  Serious: Yes (Death, Other)
  Sender: FDA-Public Use
  Company Number: BE-ROCHE-2097835

PATIENT

DRUGS (7)
  1. BACTRIM [Concomitant]
     Active Substance: SULFAMETHOXAZOLE\TRIMETHOPRIM
     Indication: PROPHYLAXIS
     Dosage: 800MG/160MG
     Route: 065
  2. MYCOPHENOLIC ACID. [Suspect]
     Active Substance: MYCOPHENOLIC ACID
     Indication: IMMUNOSUPPRESSION
     Route: 065
  3. METHYLPREDNISOLONE. [Suspect]
     Active Substance: METHYLPREDNISOLONE
     Indication: IMMUNOSUPPRESSION
     Route: 042
  4. TACROLIMUS. [Suspect]
     Active Substance: TACROLIMUS
     Indication: IMMUNOSUPPRESSION
     Route: 065
  5. MYCOPHENOLATE MOFETIL. [Suspect]
     Active Substance: MYCOPHENOLATE MOFETIL
     Indication: IMMUNOSUPPRESSION
     Route: 065
  6. VALCYTE [Concomitant]
     Active Substance: VALGANCICLOVIR HYDROCHLORIDE
     Indication: PROPHYLAXIS
     Route: 065
  7. ATG [Suspect]
     Active Substance: LAPINE T-LYMPHOCYTE IMMUNE GLOBULIN
     Indication: IMMUNOSUPPRESSION
     Dosage: FIRST DOSE OF ATG WAS GIVEN AT DAY 4 (N = 21) OR DAY 1 (N = 30) BEFORE THE FIRST IMPLANTATION (9 MG/
     Route: 065

REACTIONS (19)
  - Diarrhoea [Recovered/Resolved]
  - Cerebral haemorrhage [Fatal]
  - Adenocarcinoma gastric [Fatal]
  - Anaemia [Recovered/Resolved]
  - Leukopenia [Recovered/Resolved]
  - Viral infection [Recovered/Resolved]
  - Angina unstable [Recovered/Resolved]
  - Angina pectoris [Recovered/Resolved]
  - Encephalopathy [Recovered/Resolved]
  - Oesophageal candidiasis [Recovered/Resolved]
  - Pain [Recovered/Resolved]
  - Adenocarcinoma of colon [Recovered/Resolved]
  - Acral lentiginous melanoma [Recovered/Resolved]
  - Metastases to liver [Fatal]
  - Cytomegalovirus infection [Recovered/Resolved]
  - Prostate cancer [Recovered/Resolved]
  - Nephropathy [Recovered/Resolved]
  - Gastroenteritis [Recovered/Resolved]
  - Gastrointestinal disorder [Recovered/Resolved]
